FAERS Safety Report 26045805 (Version 1)
Quarter: 2025Q4

REPORT INFORMATION
  Report Type: Spontaneous
  Country: US (occurrence: None)
  Receive Date: 20251114
  Receipt Date: 20251114
  Transmission Date: 20260118
  Serious: Yes (Hospitalization)
  Sender: FDA-CTU
  Company Number: None

PATIENT
  Age: 56 Year
  Sex: Male
  Weight: 98.9 kg

DRUGS (2)
  1. XELODA [Suspect]
     Active Substance: CAPECITABINE
     Dates: end: 20251006
  2. ELOXATIN [Suspect]
     Active Substance: OXALIPLATIN
     Dates: end: 20250916

REACTIONS (8)
  - Cough [None]
  - Dyspnoea exertional [None]
  - Acute respiratory failure [None]
  - Pulmonary embolism [None]
  - Cardiac disorder [None]
  - Pneumothorax [None]
  - Pneumomediastinum [None]
  - Haemoptysis [None]

NARRATIVE: CASE EVENT DATE: 20251006
